FAERS Safety Report 20423701 (Version 1)
Quarter: 2022Q1

REPORT INFORMATION
  Report Type: Spontaneous
  Country: CH (occurrence: CH)
  Receive Date: 20220203
  Receipt Date: 20220203
  Transmission Date: 20220423
  Serious: Yes (Hospitalization)
  Sender: FDA-Public Use
  Company Number: None

PATIENT
  Age: 60 Year
  Sex: Male

DRUGS (18)
  1. CYCLOPHOSPHAMIDE [Suspect]
     Active Substance: CYCLOPHOSPHAMIDE
     Indication: T-cell lymphoma
     Dosage: FIRST CYCLE OF CHEMOTHERAPY USING CHOP-21, ENDOXAN IN NACL 0.9% 1150 MG
     Route: 042
     Dates: start: 20210202, end: 20210202
  2. SODIUM CHLORIDE [Suspect]
     Active Substance: SODIUM CHLORIDE
     Indication: Medication dilution
     Dosage: ENDOXAN IN NACL 0.9% 1150 MG; CHOP-21 FIRST CYCLE
     Route: 042
     Dates: start: 20210202, end: 20210202
  3. SODIUM CHLORIDE [Suspect]
     Active Substance: SODIUM CHLORIDE
     Dosage: ADRIBLASTIN IN NACL 0.9% 75 MG; CHOP-21 FIRST CYCLE
     Route: 042
     Dates: start: 20210202, end: 20210202
  4. SODIUM CHLORIDE [Suspect]
     Active Substance: SODIUM CHLORIDE
     Dosage: VINCRISTIN IN NACL 0.9% 2 MG; CHOP-21 FIRST CYCLE
     Route: 042
     Dates: start: 20210202, end: 20210202
  5. ASPIRIN [Suspect]
     Active Substance: ASPIRIN
     Indication: Platelet aggregation inhibition
     Dosage: ORAL IN TAKE 1-0-0-0 SINCE UNKNOWN POINT IN TIME UNTIL 13MAR2021
     Route: 048
     Dates: end: 20210313
  6. ASPIRIN [Suspect]
     Active Substance: ASPIRIN
     Dosage: ORAL INTAKE 1-0-0-0 SINCE UNKNOWN POINT IN TIME UNTIL
     Route: 048
     Dates: start: 20210316
  7. PRASUGREL HYDROCHLORIDE [Suspect]
     Active Substance: PRASUGREL HYDROCHLORIDE
     Indication: Platelet aggregation inhibition
     Dosage: 10 MG ORAL INTAKE 1-0-0-0 SINCE UNKNOWN POINT OF TIME UNTIL 13MAR2021
     Route: 048
     Dates: end: 20210313
  8. PREDNISOLONE [Suspect]
     Active Substance: PREDNISOLONE
     Indication: T-cell lymphoma
     Dosage: FIRST CYCLE OF CHEMOTHERAPY USING CHOP-21, 100 MG ORAL INTAKE 1X/DAY
     Route: 048
     Dates: start: 20210203, end: 20210206
  9. VINCRISTINE [Suspect]
     Active Substance: VINCRISTINE
     Indication: T-cell lymphoma
     Dosage: FIRST CYCLE OF CHEMOTHERAPY USING CHOP-21, VINCRISTIN IN NACL 0.9% 2 MG
     Route: 042
     Dates: start: 20210202, end: 20210202
  10. DOXORUBICIN HYDROCHLORIDE [Suspect]
     Active Substance: DOXORUBICIN HYDROCHLORIDE
     Indication: T-cell lymphoma
     Dosage: FIRST CYCLE OF CHEMOTHERAPY USING CHOP-21, ADRIBLASTIN IN NACL 0.9% 75 MG
     Route: 042
     Dates: start: 20210202, end: 20210202
  11. BACTRIM [Concomitant]
     Active Substance: SULFAMETHOXAZOLE\TRIMETHOPRIM
     Indication: Product used for unknown indication
     Dosage: BACTRIM? FORTE (TRIMETHOPRIM / SULFAMETHOXAZOLE) 160 / 800 MG 3X/WEEK; TIME INTERVAL:
     Route: 048
  12. EZETIMIBE [Concomitant]
     Active Substance: EZETIMIBE
     Indication: Product used for unknown indication
     Dosage: EZETIMIBE (EXACT PREPARATION UNKNOWN) 10 MG 1-0-0-0
     Route: 048
  13. LAMIVUDINE [Concomitant]
     Active Substance: LAMIVUDINE
     Indication: Product used for unknown indication
     Dosage: LAMIVUDIN (EXACT PREPARATION UNKNOWN) 300 MG 0.5-0-0-0
     Route: 048
  14. METFORMIN [Concomitant]
     Active Substance: METFORMIN HYDROCHLORIDE
     Indication: Product used for unknown indication
     Dosage: METFORMIN (EXACT PREPARATION UNKNOWN) 1000 MG 1-0-1-0
     Route: 048
  15. PANTOPRAZOLE SODIUM [Concomitant]
     Active Substance: PANTOPRAZOLE SODIUM
     Indication: Product used for unknown indication
     Dosage: PANTOPRAZOL (EXACT PREPARATION UNKNOWN) 40 MG 0-0-1-0
     Route: 048
  16. ROSUVASTATIN [Concomitant]
     Active Substance: ROSUVASTATIN
     Indication: Product used for unknown indication
     Dosage: ROSUVASTATIN (EXACT PREPARATION UNKNOWN) 20 MG 0-0-1-0
     Route: 048
  17. VALTREX [Concomitant]
     Active Substance: VALACYCLOVIR HYDROCHLORIDE
     Indication: Product used for unknown indication
     Dosage: VALTREX? (VALACYCLOVIR) 500 MG 1-0-1-0
     Route: 048
  18. ALLOPURINOL [Concomitant]
     Active Substance: ALLOPURINOL
     Indication: Product used for unknown indication
     Dosage: ZYLORIC? (ALLOPURINOL) 300 MG 1-0-0
     Route: 048

REACTIONS (5)
  - Melanaemia [Recovering/Resolving]
  - Gastrointestinal haemorrhage [Recovering/Resolving]
  - Anaemia [Recovering/Resolving]
  - Thrombocytopenia [Recovered/Resolved]
  - Asthenia [Recovering/Resolving]

NARRATIVE: CASE EVENT DATE: 20210313
